FAERS Safety Report 19657538 (Version 1)
Quarter: 2021Q3

REPORT INFORMATION
  Report Type: Spontaneous
  Country: CH (occurrence: CH)
  Receive Date: 20210804
  Receipt Date: 20210804
  Transmission Date: 20211014
  Serious: Yes (Other)
  Sender: FDA-Public Use
  Company Number: CH-ANIPHARMA-2021-CH-000041

PATIENT
  Age: 76 Year
  Sex: Female

DRUGS (3)
  1. COMIRNATY [Suspect]
     Active Substance: TOZINAMERAN
     Dosage: 1 DF DAILY
     Route: 030
     Dates: start: 20210414, end: 20210414
  2. PROLIA [Suspect]
     Active Substance: DENOSUMAB
     Dosage: 1 DF Q6MO / 60 MG Q6MO
     Route: 065
  3. ARIMIDEX [Suspect]
     Active Substance: ANASTROZOLE
     Indication: BREAST CANCER
     Dosage: 1 DF DAILY
     Route: 048

REACTIONS (2)
  - Varicophlebitis [Recovering/Resolving]
  - Thrombophlebitis [Recovering/Resolving]
